FAERS Safety Report 6743556-6 (Version None)
Quarter: 2010Q2

REPORT INFORMATION
  Report Type: 
  Country: None (occurrence: None)
  Receive Date: 20100527
  Receipt Date: 20100520
  Transmission Date: 20101027
  Serious: Yes (Other)
  Sender: FDA-Public Use
  Company Number: US-ROCHE-692581

PATIENT
  Sex: Female

DRUGS (4)
  1. PEGINTERFERON ALFA-2A [Suspect]
     Indication: HEPATITIS C
     Dosage: FORM: PRE-FILLED SYRINGE.
     Route: 065
     Dates: start: 20100219
  2. RIBASPHERE [Suspect]
     Indication: HEPATITIS C
     Route: 065
     Dates: start: 20100219
  3. PRISTIQ [Concomitant]
     Dosage: TAKEN DAILY.
  4. XANAX [Concomitant]

REACTIONS (13)
  - ABDOMINAL SYMPTOM [None]
  - BONE PAIN [None]
  - CRYING [None]
  - DYSPHAGIA [None]
  - DYSPHONIA [None]
  - HYPERSOMNIA [None]
  - INSOMNIA [None]
  - LACERATION [None]
  - MALIGNANT NEOPLASM PROGRESSION [None]
  - NAUSEA [None]
  - PAIN [None]
  - PAIN IN EXTREMITY [None]
  - VICTIM OF CRIME [None]
